FAERS Safety Report 15232679 (Version 8)
Quarter: 2018Q3

REPORT INFORMATION
  Report Type: Spontaneous
  Country: US (occurrence: US)
  Receive Date: 20180802
  Receipt Date: 20180926
  Transmission Date: 20181010
  Serious: Yes (Hospitalization)
  Sender: FDA-Public Use
  Company Number: US-CELGENEUS-USA-20180709327

PATIENT
  Age: 92 Year
  Sex: Female

DRUGS (2)
  1. OTEZLA [Suspect]
     Active Substance: APREMILAST
     Indication: PSORIATIC ARTHROPATHY
     Dosage: 60 MILLIGRAM
     Route: 048
     Dates: start: 20180507
  2. OTEZLA [Suspect]
     Active Substance: APREMILAST
     Dosage: 60 MILLIGRAM
     Route: 048
     Dates: start: 20180601, end: 20180725

REACTIONS (4)
  - Spinal pain [Recovered/Resolved]
  - Diarrhoea [Recovered/Resolved]
  - Musculoskeletal pain [Recovered/Resolved]
  - Lymphoma [Recovered/Resolved]

NARRATIVE: CASE EVENT DATE: 20180618
